FAERS Safety Report 7675205-7 (Version None)
Quarter: 2011Q3

REPORT INFORMATION
  Report Type: 
  Country: None (occurrence: None)
  Receive Date: 20110810
  Receipt Date: 20110810
  Transmission Date: 20111222
  Serious: Yes (Hospitalization)
  Sender: FDA-Public Use
  Company Number: None

PATIENT
  Age: 24 Year
  Sex: Female
  Weight: 72.4 kg

DRUGS (2)
  1. METHOTREXATE [Concomitant]
  2. BACTRIM DS [Suspect]
     Indication: STAPHYLOCOCCAL INFECTION
     Dosage: DOUBLE STRENGTH
     Route: 048
     Dates: start: 20110803, end: 20110805

REACTIONS (4)
  - MALAISE [None]
  - MYALGIA [None]
  - ARTHRALGIA [None]
  - PYREXIA [None]
